FAERS Safety Report 18054457 (Version 1)
Quarter: 2020Q3

REPORT INFORMATION
  Report Type: Spontaneous
  Country: US (occurrence: US)
  Receive Date: 20200722
  Receipt Date: 20200722
  Transmission Date: 20201103
  Serious: Yes (Hospitalization)
  Sender: FDA-Public Use
  Company Number: None

PATIENT
  Sex: Male
  Weight: 92.3 kg

DRUGS (2)
  1. PREDNISONE. [Suspect]
     Active Substance: PREDNISONE
  2. ABIRATERONE ACETATE. [Suspect]
     Active Substance: ABIRATERONE ACETATE

REACTIONS (5)
  - Gastric ulcer [None]
  - Haemoglobin decreased [None]
  - Blood urea abnormal [None]
  - Nausea [None]
  - Melaena [None]

NARRATIVE: CASE EVENT DATE: 20200715
